FAERS Safety Report 22884407 (Version 6)
Quarter: 2025Q1

REPORT INFORMATION
  Report Type: Spontaneous
  Country: US (occurrence: US)
  Receive Date: 20230830
  Receipt Date: 20250331
  Transmission Date: 20250408
  Serious: Yes (Hospitalization)
  Sender: PFIZER
  Company Number: US-PFIZER INC-PV202300147211

PATIENT
  Age: 74 Year
  Sex: Female
  Weight: 70.76 kg

DRUGS (7)
  1. IBRANCE [Suspect]
     Active Substance: PALBOCICLIB
     Indication: Breast cancer metastatic
     Route: 048
     Dates: start: 202308
  2. IBRANCE [Suspect]
     Active Substance: PALBOCICLIB
     Route: 048
  3. LETROZOLE [Suspect]
     Active Substance: LETROZOLE
     Indication: HER2 positive breast cancer
     Dosage: 2.5 MG, 1X/DAY
  4. LETROZOLE [Suspect]
     Active Substance: LETROZOLE
     Indication: Hormone level abnormal
  5. ZOMETA [Suspect]
     Active Substance: ZOLEDRONIC ACID
     Indication: Breast cancer metastatic
     Route: 041
     Dates: start: 2024, end: 2024
  6. RECLAST [Suspect]
     Active Substance: ZOLEDRONIC ACID
     Indication: Breast cancer metastatic
     Route: 041
  7. HYDRALAZINE [Concomitant]
     Active Substance: HYDRALAZINE HYDROCHLORIDE
     Indication: Hypertension

REACTIONS (7)
  - Aphasia [Recovering/Resolving]
  - Hypoacusis [Unknown]
  - Muscle spasms [Unknown]
  - Blood calcium decreased [Unknown]
  - Pain [Unknown]
  - Blood potassium increased [Unknown]
  - Blood calcium abnormal [Unknown]

NARRATIVE: CASE EVENT DATE: 20240101
